FAERS Safety Report 4945560-7 (Version None)
Quarter: 2006Q1

REPORT INFORMATION
  Report Type: 
  Country: None (occurrence: None)
  Receive Date: 20060117
  Receipt Date: 20051028
  Transmission Date: 20060701
  Serious: Yes (Hospitalization)
  Sender: FDA-Public Use
  Company Number: A03200503441

PATIENT
  Age: 64 Year
  Sex: Male
  Weight: 86.1834 kg

DRUGS (1)
  1. PLAVIX [Suspect]
     Indication: CEREBROVASCULAR ACCIDENT
     Dosage: 75 MG, QD  - ORAL
     Route: 048
     Dates: start: 20050101, end: 20050101

REACTIONS (1)
  - CEREBROVASCULAR ACCIDENT [None]
